FAERS Safety Report 9812833 (Version 2)
Quarter: 2014Q1

REPORT INFORMATION
  Report Type: Spontaneous
  Country: US (occurrence: US)
  Receive Date: 20140113
  Receipt Date: 20140220
  Transmission Date: 20141002
  Serious: No
  Sender: FDA-Public Use
  Company Number: US-PFIZER INC-2014010124

PATIENT
  Age: 67 Year
  Sex: Female
  Weight: 88.44 kg

DRUGS (3)
  1. LYRICA [Suspect]
     Indication: FIBROMYALGIA
     Dosage: 300 MG, 2X/DAY
     Route: 048
     Dates: end: 20140104
  2. ZALEPLON [Concomitant]
     Dosage: 10 MG, UNK
  3. ATORVASTATIN [Concomitant]
     Dosage: UNK

REACTIONS (1)
  - Pain [Unknown]
